FAERS Safety Report 5179331-6 (Version None)
Quarter: 2006Q4

REPORT INFORMATION
  Report Type: 
  Country: None (occurrence: None)
  Receive Date: 20061219
  Receipt Date: 20061215
  Transmission Date: 20070319
  Serious: Yes (Hospitalization)
  Sender: FDA-Public Use
  Company Number: US-GLAXOSMITHKLINE-A0631974A

PATIENT
  Age: 72 Year
  Sex: Female
  Weight: 59.2 kg

DRUGS (2)
  1. TOPOTECAN [Suspect]
     Indication: BREAST CANCER METASTATIC
     Dosage: 3MGM2 WEEKLY
     Route: 042
     Dates: start: 20061205
  2. VELCADE [Suspect]
     Indication: BREAST CANCER METASTATIC
     Dosage: 1.3MGM2 WEEKLY
     Route: 042
     Dates: start: 20061205

REACTIONS (6)
  - ACUTE CORONARY SYNDROME [None]
  - FACIAL PALSY [None]
  - FALL [None]
  - PNEUMONIA [None]
  - TRANSIENT ISCHAEMIC ATTACK [None]
  - URINARY TRACT INFECTION [None]
